FAERS Safety Report 8809795 (Version 1)
Quarter: 2012Q4

REPORT INFORMATION
  Report Type: 
  Country: IT (occurrence: ES)
  Receive Date: 20120926
  Receipt Date: 20120926
  Transmission Date: 20130627
  Serious: Yes (Hospitalization)
  Sender: FDA-Public Use
  Company Number: ES-FRI-1000038892

PATIENT
  Age: 53 Year
  Sex: Female

DRUGS (6)
  1. FOSFOMYCIN [Suspect]
     Indication: CYSTITIS
     Dosage: 3 g
     Route: 048
     Dates: start: 20120413, end: 20120414
  2. MOTILIUM [Suspect]
     Route: 048
     Dates: start: 20120413, end: 20120417
  3. OMEPRAZOL [Suspect]
     Dosage: 20 mg
     Route: 048
     Dates: start: 20120413, end: 20120417
  4. PARACETAMOL [Concomitant]
     Indication: PAIN
     Dosage: 1500 mg
     Dates: start: 2011
  5. IBUPROFEN [Concomitant]
     Indication: PAIN
     Dosage: 1200 mg
     Dates: start: 2011
  6. PLANTABEN [Concomitant]
     Dosage: 1 DF
     Route: 048
     Dates: start: 201205

REACTIONS (2)
  - Hepatitis toxic [Recovered/Resolved]
  - Pruritus [Recovered/Resolved]
